FAERS Safety Report 5422331-9 (Version None)
Quarter: 2007Q3

REPORT INFORMATION
  Report Type: 
  Country: None (occurrence: None)
  Receive Date: 20070822
  Receipt Date: 20070814
  Transmission Date: 20080115
  Serious: Yes (Other)
  Sender: FDA-Public Use
  Company Number: US-GENENTECH-240015

PATIENT
  Sex: Male

DRUGS (4)
  1. AVASTIN [Suspect]
     Indication: COLON CANCER METASTATIC
     Dosage: 35 MG, Q2W
     Route: 042
     Dates: start: 20070612
  2. XELODA [Concomitant]
     Indication: COLON CANCER METASTATIC
  3. OXALIPLATIN [Concomitant]
     Indication: COLON CANCER METASTATIC
  4. CARDIZEM CD [Concomitant]
     Indication: DRUG USE FOR UNKNOWN INDICATION

REACTIONS (1)
  - SUPRAVENTRICULAR TACHYCARDIA [None]
